FAERS Safety Report 15167620 (Version 1)
Quarter: 2018Q3

REPORT INFORMATION
  Report Type: Spontaneous
  Country: US (occurrence: US)
  Receive Date: 20180621
  Receipt Date: 20180621
  Transmission Date: 20181010
  Serious: Yes (Disabling)
  Sender: FDA-Public Use
  Company Number: None

PATIENT
  Age: 47 Year
  Sex: Male
  Weight: 94.5 kg

DRUGS (1)
  1. FLUTICASONE PROPIONATE NASAL SPRAY USP 50 MCG PER SPRAY 120 METERED SP [Suspect]
     Active Substance: FLUTICASONE PROPIONATE
     Indication: NASAL CONGESTION
     Dosage: ?          QUANTITY:1 SPRAY(S);OTHER ROUTE:THROUGH NASAL?
     Dates: start: 20171205, end: 20180621

REACTIONS (4)
  - Haemoptysis [None]
  - Drug hypersensitivity [None]
  - Epistaxis [None]
  - Product quality issue [None]

NARRATIVE: CASE EVENT DATE: 20171202
